FAERS Safety Report 4500127-X (Version None)
Quarter: 2004Q4

REPORT INFORMATION
  Report Type: 
  Country: None (occurrence: None)
  Receive Date: 20041112
  Receipt Date: 20041104
  Transmission Date: 20050328
  Serious: Yes (Hospitalization)
  Sender: FDA-Public Use
  Company Number: JP-JNJFOC-20040800657

PATIENT
  Sex: Male
  Weight: 60.4 kg

DRUGS (10)
  1. TOPIRMATE [Suspect]
     Dosage: 200 MG IN THE MORNING AND 300 MG IN THE EVENING.
     Route: 049
  2. TOPIRMATE [Suspect]
     Route: 049
  3. TOPIRMATE [Suspect]
     Route: 049
  4. TOPIRMATE [Suspect]
     Route: 049
  5. TOPIRMATE [Suspect]
     Route: 049
  6. TOPIRMATE [Suspect]
     Route: 049
  7. TOPIRMATE [Suspect]
     Indication: EPILEPSY
     Route: 049
  8. DEPAKENE [Concomitant]
     Indication: EPILEPSY
     Route: 049
  9. HYDANTOL [Concomitant]
     Indication: EPILEPSY
     Route: 049
  10. ALEVIATIN [Concomitant]
     Indication: EPILEPSY
     Route: 049

REACTIONS (8)
  - CONTUSION [None]
  - DEHYDRATION [None]
  - EXCORIATION [None]
  - FALL [None]
  - FOOT FRACTURE [None]
  - HEAT STROKE [None]
  - INFECTION [None]
  - PYREXIA [None]
